FAERS Safety Report 22096338 (Version 1)
Quarter: 2023Q1

REPORT INFORMATION
  Report Type: Spontaneous
  Country: US (occurrence: US)
  Receive Date: 20230315
  Receipt Date: 20230315
  Transmission Date: 20230418
  Serious: Yes (Other)
  Sender: FDA-Public Use
  Company Number: US-AMGEN-USASP2023040702

PATIENT
  Age: 57 Year
  Sex: Male

DRUGS (5)
  1. RITUXIMAB [Suspect]
     Active Substance: RITUXIMAB
     Indication: Ventricular arrhythmia
     Dosage: UNK
     Route: 065
  2. THYMOCYTE IMMUNE GLOBULIN NOS [Concomitant]
     Active Substance: THYMOCYTE IMMUNE GLOBULIN NOS
     Indication: Ventricular arrhythmia
     Dosage: UNK
  3. METHYLPREDNISOLONE [Concomitant]
     Active Substance: METHYLPREDNISOLONE
     Indication: Ventricular arrhythmia
     Dosage: UNK
  4. BERINERT [Concomitant]
     Active Substance: HUMAN C1-ESTERASE INHIBITOR
     Indication: Ventricular arrhythmia
     Dosage: UNK
  5. MEXILETINE [Concomitant]
     Active Substance: MEXILETINE
     Indication: Ventricular arrhythmia
     Dosage: UNK
     Route: 048

REACTIONS (3)
  - Heart transplant rejection [Unknown]
  - Physical deconditioning [Unknown]
  - Off label use [Unknown]
